FAERS Safety Report 8807126 (Version 1)
Quarter: 2012Q4

REPORT INFORMATION
  Report Type: 
  Country: TH (occurrence: TH)
  Receive Date: 20120925
  Receipt Date: 20120925
  Transmission Date: 20130627
  Serious: Yes (Death, Hospitalization)
  Sender: FDA-Public Use
  Company Number: PHHO2005TH09423

PATIENT
  Age: 66 Year
  Sex: Male
  Weight: 68 kg

DRUGS (1)
  1. GLIVEC [Suspect]
     Indication: BLAST CRISIS IN MYELOGENOUS LEUKAEMIA
     Dosage: 600 mg, QD
     Route: 048
     Dates: start: 20041123

REACTIONS (5)
  - Death [Fatal]
  - White blood cell count increased [Unknown]
  - Productive cough [Unknown]
  - Sepsis [Unknown]
  - Pyrexia [Unknown]
